FAERS Safety Report 7197139-7 (Version None)
Quarter: 2010Q4

REPORT INFORMATION
  Report Type: 
  Country: None (occurrence: None)
  Receive Date: 20101224
  Receipt Date: 20101214
  Transmission Date: 20110411
  Serious: Yes (Other)
  Sender: FDA-Public Use
  Company Number: PHHY2010FR86046

PATIENT
  Sex: Male

DRUGS (8)
  1. NEORAL [Suspect]
     Indication: BONE MARROW TRANSPLANT
     Dosage: 100 MG/ML
     Route: 048
     Dates: start: 20101004, end: 20101117
  2. NEORAL [Suspect]
     Indication: ACUTE LEUKAEMIA
  3. SANDIMMUNE [Suspect]
     Dosage: 50 MG/ML
     Route: 042
     Dates: start: 20100917, end: 20101004
  4. VISTIDE [Concomitant]
     Dosage: 1 DF WEEKLY
     Dates: start: 20101017
  5. VISTIDE [Concomitant]
     Dosage: 1 DF WEEKLY
     Dates: start: 20101112
  6. BRISTOPEN [Concomitant]
     Dosage: UNK
     Dates: start: 20101015, end: 20101027
  7. ORACILLINE [Concomitant]
     Dosage: UNK
     Dates: start: 20101027
  8. SPORANOX [Concomitant]
     Dosage: UNK

REACTIONS (5)
  - CYTOMEGALOVIRUS INFECTION [None]
  - PETECHIAE [None]
  - PURPURA [None]
  - RASH PAPULAR [None]
  - SKIN TOXICITY [None]
